FAERS Safety Report 18935262 (Version 2)
Quarter: 2021Q1

REPORT INFORMATION
  Report Type: Spontaneous
  Country: US (occurrence: US)
  Receive Date: 20210224
  Receipt Date: 20210308
  Transmission Date: 20210420
  Serious: No
  Sender: FDA-Public Use
  Company Number: US-HRARD-202000414

PATIENT
  Age: 66 Year
  Sex: Female

DRUGS (4)
  1. LYSODREN [Suspect]
     Active Substance: MITOTANE
     Indication: ADRENOCORTICAL CARCINOMA
     Dates: start: 202004
  2. LYSODREN [Suspect]
     Active Substance: MITOTANE
     Indication: ADRENOCORTICAL CARCINOMA
     Dosage: 1000 MG OF LYSODREN FOR THE FIRST 2 WEEKS, AND THEN INCREASED TO 1500 BID
     Dates: start: 202010
  3. LYSODREN [Suspect]
     Active Substance: MITOTANE
     Indication: ADRENOCORTICAL CARCINOMA
     Dosage: 1000 MG OF LYSODREN FOR THE FIRST 2 WEEKS, AND THEN INCREASED TO 1500 BID
     Dates: start: 20201016
  4. LYSODREN [Suspect]
     Active Substance: MITOTANE
     Indication: ADRENOCORTICAL CARCINOMA
     Dosage: TAPERED UP
     Dates: start: 202004

REACTIONS (4)
  - Ataxia [Unknown]
  - Asthenia [Unknown]
  - Visual impairment [Unknown]
  - Nausea [Unknown]

NARRATIVE: CASE EVENT DATE: 20200427
